FAERS Safety Report 4526420-2 (Version None)
Quarter: 2004Q4

REPORT INFORMATION
  Report Type: 
  Country: None (occurrence: None)
  Receive Date: 20041214
  Receipt Date: 20041206
  Transmission Date: 20050328
  Serious: Yes (Hospitalization)
  Sender: FDA-Public Use
  Company Number: FR-ROCHE-388362

PATIENT
  Age: 63 Year
  Sex: Female

DRUGS (4)
  1. RIVOTRIL [Suspect]
     Indication: DRUG USE FOR UNKNOWN INDICATION
     Route: 048
     Dates: start: 20040912
  2. STILNOX [Suspect]
     Route: 048
  3. COKENZEN [Suspect]
     Route: 048
     Dates: start: 20040912
  4. DAKTARIN [Suspect]
     Route: 048
     Dates: start: 20040915

REACTIONS (5)
  - ANTINUCLEAR ANTIBODY POSITIVE [None]
  - EPSTEIN-BARR VIRUS ANTIBODY POSITIVE [None]
  - NEUTROPENIA [None]
  - NORMOCHROMIC NORMOCYTIC ANAEMIA [None]
  - PARVOVIRUS B19 SEROLOGY POSITIVE [None]
